FAERS Safety Report 24837339 (Version 1)
Quarter: 2025Q1

REPORT INFORMATION
  Report Type: Other
  Country: FR (occurrence: FR)
  Receive Date: 20250113
  Receipt Date: 20250113
  Transmission Date: 20250409
  Serious: Yes (Other)
  Sender: INCYTE
  Company Number: None

PATIENT

DRUGS (1)
  1. OPZELURA [Suspect]
     Active Substance: RUXOLITINIB PHOSPHATE
     Indication: Vitiligo
     Route: 003
     Dates: start: 20240901, end: 20241001

REACTIONS (2)
  - Rosacea [Recovering/Resolving]
  - Demodicidosis [Recovering/Resolving]

NARRATIVE: CASE EVENT DATE: 20241001
